FAERS Safety Report 4438600-5 (Version None)
Quarter: 2004Q3

REPORT INFORMATION
  Report Type: 
  Country: None (occurrence: None)
  Receive Date: 20040728
  Receipt Date: 20040412
  Transmission Date: 20050211
  Serious: No
  Sender: FDA-Public Use
  Company Number: USA040260109

PATIENT
  Age: 9 Year
  Sex: Female
  Weight: 29 kg

DRUGS (2)
  1. STRATTERA [Suspect]
     Indication: ABNORMAL BEHAVIOUR
     Dosage: 40 MG DAY
     Dates: start: 20040105, end: 20040207
  2. RITALIN LA [Concomitant]

REACTIONS (7)
  - CRYING [None]
  - DEPRESSION [None]
  - DRUG INEFFECTIVE [None]
  - FATIGUE [None]
  - IRRITABILITY [None]
  - NAUSEA [None]
  - SUICIDAL IDEATION [None]
